FAERS Safety Report 25980180 (Version 1)
Quarter: 2025Q4

REPORT INFORMATION
  Report Type: Spontaneous
  Country: US (occurrence: US)
  Receive Date: 20251030
  Receipt Date: 20251030
  Transmission Date: 20260118
  Serious: Yes (Hospitalization)
  Sender: GLAND PHARMA LTD
  Company Number: US-GLANDPHARMA-US-2025GLNSPO02018

PATIENT

DRUGS (3)
  1. VERAPAMIL HYDROCHLORIDE [Suspect]
     Active Substance: VERAPAMIL HYDROCHLORIDE
     Indication: Product used for unknown indication
     Route: 065
  2. INDOMETHACIN [Suspect]
     Active Substance: INDOMETHACIN
     Indication: Pain
     Route: 065
  3. JAKAFI [Concomitant]
     Active Substance: RUXOLITINIB
     Indication: Product used for unknown indication
     Route: 065

REACTIONS (3)
  - Generalised oedema [Recovering/Resolving]
  - Pain [Recovering/Resolving]
  - Drug hypersensitivity [Recovering/Resolving]

NARRATIVE: CASE EVENT DATE: 20250901
